FAERS Safety Report 17316453 (Version 3)
Quarter: 2020Q1

REPORT INFORMATION
  Report Type: Spontaneous
  Country: US (occurrence: US)
  Receive Date: 20200124
  Receipt Date: 20200323
  Transmission Date: 20200409
  Serious: Yes (Other)
  Sender: FDA-Public Use
  Company Number: US-PFIZER INC-2020031226

PATIENT
  Age: 77 Year
  Sex: Male
  Weight: 69.4 kg

DRUGS (1)
  1. PROPOFOL. [Suspect]
     Active Substance: PROPOFOL
     Indication: SEDATION
     Dosage: 200MG/20ML, 550MG INTRAVENOUSLY ONCE
     Route: 042
     Dates: start: 20200117, end: 20200117

REACTIONS (4)
  - Chills [Recovered/Resolved]
  - Hypothermia [Recovered/Resolved]
  - Feeling cold [Unknown]
  - Product quality issue [Unknown]

NARRATIVE: CASE EVENT DATE: 20200117
